FAERS Safety Report 4807074-4 (Version None)
Quarter: 2005Q4

REPORT INFORMATION
  Report Type: 
  Country: None (occurrence: None)
  Receive Date: 20051024
  Receipt Date: 20051012
  Transmission Date: 20060501
  Serious: Yes (Hospitalization, Other)
  Sender: FDA-Public Use
  Company Number: BE-BRISTOL-MYERS SQUIBB COMPANY-13153515

PATIENT
  Age: 61 Year
  Sex: Male

DRUGS (4)
  1. CETUXIMAB [Suspect]
     Indication: COLORECTAL CANCER METASTATIC
     Route: 041
     Dates: start: 20050914
  2. IRINOTECAN HCL [Suspect]
     Indication: COLORECTAL CANCER METASTATIC
     Dosage: FIRST AND MOST RECENT INFUSION.
     Route: 042
     Dates: start: 20050914
  3. LEUCOVORIN CALCIUM [Suspect]
     Indication: COLORECTAL CANCER METASTATIC
     Dosage: FIRST AND MOST RECENT INFUSION.
     Route: 042
     Dates: start: 20050914
  4. FLUOROURACIL [Suspect]
     Indication: COLORECTAL CANCER METASTATIC
     Dosage: FIRST AND MOST RECENT INFUSION.
     Route: 042
     Dates: start: 20050914

REACTIONS (1)
  - ELECTROLYTE IMBALANCE [None]
